FAERS Safety Report 22339241 (Version 7)
Quarter: 2025Q1

REPORT INFORMATION
  Report Type: Spontaneous
  Country: DO (occurrence: DO)
  Receive Date: 20230518
  Receipt Date: 20250221
  Transmission Date: 20250408
  Serious: No
  Sender: PFIZER
  Company Number: DO-PFIZER INC-PV202300085655

PATIENT
  Age: 12 Year
  Sex: Male

DRUGS (1)
  1. GENOTROPIN [Suspect]
     Active Substance: SOMATROPIN
     Dosage: 1.3 MG, DAILY

REACTIONS (4)
  - Device physical property issue [Unknown]
  - Injection site discomfort [Unknown]
  - Patient-device incompatibility [Unknown]
  - Device defective [Unknown]
